FAERS Safety Report 4903391-8 (Version None)
Quarter: 2006Q1

REPORT INFORMATION
  Report Type: 
  Country: None (occurrence: None)
  Receive Date: 20060203
  Receipt Date: 20060118
  Transmission Date: 20060701
  Serious: Yes (Other)
  Sender: FDA-Public Use
  Company Number: DSA_27691_2006

PATIENT
  Age: 43 Year
  Sex: Male

DRUGS (8)
  1. DILTIAZEM HCL [Suspect]
     Indication: ANGINA PECTORIS
     Dosage: 360 MG Q DAY PO
     Route: 048
  2. NEXIUM [Concomitant]
  3. SIMVASTATIN [Concomitant]
  4. ATENOLOL [Concomitant]
  5. NICORANDIL [Concomitant]
  6. RAMIPRIL [Concomitant]
  7. GLYCERYL TRINITRATE [Concomitant]
  8. ACETYLSALICYLIC ACID SRT [Concomitant]

REACTIONS (1)
  - RASH VESICULAR [None]
